FAERS Safety Report 7902862-X (Version None)
Quarter: 2011Q4

REPORT INFORMATION
  Report Type: 
  Country: None (occurrence: None)
  Receive Date: 20111107
  Receipt Date: 20111025
  Transmission Date: 20120403
  Serious: Yes (Death, Life-Threatening)
  Sender: FDA-Public Use
  Company Number: 1088840

PATIENT
  Age: 59 Year
  Sex: Female
  Weight: 69 kg

DRUGS (2)
  1. OXALIPLATIN [Suspect]
     Indication: COLON CANCER STAGE III
     Dosage: 130 MG/M 2 MILLIGRAM(S)/SQ. METER (21 DAY)
     Route: 042
     Dates: start: 20110301, end: 20110906
  2. CAPECITABINE [Suspect]
     Indication: COLON CANCER STAGE III
     Dosage: 2000 MG/M 2 MILLIGRAM(S)/SQ. METER (14 DAY)
     Route: 048
     Dates: start: 20110301, end: 20110919

REACTIONS (3)
  - THROMBOCYTOPENIA [None]
  - SUBDURAL HAEMATOMA [None]
  - BRAIN STEM ISCHAEMIA [None]
